FAERS Safety Report 6032166-4 (Version None)
Quarter: 2009Q1

REPORT INFORMATION
  Report Type: 
  Country: None (occurrence: None)
  Receive Date: 20090107
  Receipt Date: 20081222
  Transmission Date: 20090719
  Serious: Yes (Hospitalization)
  Sender: FDA-Public Use
  Company Number: DSA_32965_2008

PATIENT
  Sex: Male

DRUGS (12)
  1. DILTIAZEM HCL [Suspect]
     Indication: HYPERTENSION
     Dosage: (300 MG QD ORAL)
     Route: 048
  2. LASILIX [Suspect]
     Indication: OEDEMA
     Dosage: (80 MG QD ORAL)
     Route: 048
     Dates: end: 20080327
  3. LEVOFLOXACIN [Suspect]
     Indication: RESPIRATORY TRACT INFECTION
     Dosage: (DF ORAL)
     Dates: start: 20080201
  4. BISOPROLOL FUMARATE [Suspect]
     Indication: CARDIAC FAILURE CHRONIC
     Dosage: (1.25 MG QD ORAL)
     Route: 048
     Dates: end: 20080327
  5. DIGOXIN [Suspect]
     Indication: CARDIAC FAILURE
     Dosage: (0.125 MG QD ORAL)
     Route: 048
  6. NOVONORM [Suspect]
     Indication: TYPE 2 DIABETES MELLITUS
     Dosage: (0.5 MG BID ORAL)
     Route: 048
  7. PERMIXON [Suspect]
     Indication: MICTURITION DISORDER
     Dosage: (160 MG BID ORAL)
     Route: 048
  8. DUTASTERIDE [Suspect]
     Indication: BENIGN PROSTATIC HYPERPLASIA
     Dosage: (0.5 MG QD ORAL)
     Route: 048
  9. LERCAN [Suspect]
     Indication: ESSENTIAL HYPERTENSION
     Dosage: (10 MG QD ORAL)
     Route: 048
     Dates: end: 20080327
  10. PREVISCAN [Suspect]
     Indication: PULMONARY EMBOLISM
     Dosage: (15 MG QD ORAL)
     Route: 048
  11. AUGMENTIN '125' [Suspect]
     Indication: RESPIRATORY TRACT INFECTION
     Dosage: (DF)
     Dates: start: 20080201
  12. ROCEPHIN [Suspect]
     Indication: RESPIRATORY TRACT INFECTION
     Dosage: (DF)
     Dates: start: 20080201

REACTIONS (9)
  - BLOOD CREATININE INCREASED [None]
  - BLOOD UREA INCREASED [None]
  - C-REACTIVE PROTEIN INCREASED [None]
  - ECZEMA [None]
  - EOSINOPHILIA [None]
  - GLYCOSYLATED HAEMOGLOBIN INCREASED [None]
  - HAEMOGLOBIN DECREASED [None]
  - OEDEMA PERIPHERAL [None]
  - PITTING OEDEMA [None]
